FAERS Safety Report 20998949 (Version 2)
Quarter: 2022Q3

REPORT INFORMATION
  Report Type: Spontaneous
  Country: JP (occurrence: JP)
  Receive Date: 20220623
  Receipt Date: 20220718
  Transmission Date: 20221026
  Serious: Yes (Death, Other)
  Sender: FDA-Public Use
  Company Number: JP-OTSUKA-2022_033167

PATIENT
  Age: 90 Year
  Sex: Female

DRUGS (2)
  1. TOLVAPTAN [Suspect]
     Active Substance: TOLVAPTAN
     Indication: Cardiac failure
     Dosage: 8 MG/DAY
     Route: 041
     Dates: start: 20220615, end: 20220616
  2. FUROSEMIDE [Concomitant]
     Active Substance: FUROSEMIDE
     Indication: Product used for unknown indication
     Dosage: UNK
     Route: 065

REACTIONS (1)
  - Pneumonia [Fatal]

NARRATIVE: CASE EVENT DATE: 20220621
